FAERS Safety Report 8917330 (Version 1)
Quarter: 2012Q4

REPORT INFORMATION
  Report Type: 
  Country: US (occurrence: US)
  Receive Date: 20121120
  Receipt Date: 20121120
  Transmission Date: 20130627
  Serious: No
  Sender: FDA-Public Use
  Company Number: US-009507513-1211USA007585

PATIENT
  Age: 2 Year
  Sex: Male

DRUGS (2)
  1. SINGULAIR [Suspect]
     Indication: HYPERSENSITIVITY
     Dosage: 4 mg, qd
     Route: 048
  2. SINGULAIR [Suspect]
     Indication: ASTHMA

REACTIONS (1)
  - Muscle spasms [Unknown]
